FAERS Safety Report 25152596 (Version 2)
Quarter: 2025Q2

REPORT INFORMATION
  Report Type: Spontaneous
  Country: US (occurrence: US)
  Receive Date: 20250402
  Receipt Date: 20250417
  Transmission Date: 20250716
  Serious: No
  Sender: BAUSCH AND LOMB
  Company Number: US-BAUSCHBL-2025BNL005321

PATIENT
  Age: 75 Year
  Sex: Male

DRUGS (1)
  1. HYDROCORTISONE\NEOMYCIN SULFATE\POLYMYXIN B SULFATE [Suspect]
     Active Substance: HYDROCORTISONE\NEOMYCIN SULFATE\POLYMYXIN B SULFATE
     Indication: Product used for unknown indication
     Route: 065

REACTIONS (7)
  - Ear discomfort [Unknown]
  - Condition aggravated [Unknown]
  - Discomfort [Unknown]
  - Product complaint [Unknown]
  - Suspected product contamination [Unknown]
  - Product use complaint [Unknown]
  - Product dose omission in error [Unknown]
